FAERS Safety Report 17424800 (Version 2)
Quarter: 2020Q1

REPORT INFORMATION
  Report Type: Report from Study
  Country: US (occurrence: US)
  Receive Date: 20200217
  Receipt Date: 20200317
  Transmission Date: 20200409
  Serious: Yes (Hospitalization)
  Sender: FDA-Public Use
  Company Number: NVSC2020US038943

PATIENT
  Age: 59 Year
  Sex: Female
  Weight: 38.1 kg

DRUGS (1)
  1. GILENYA [Suspect]
     Active Substance: FINGOLIMOD HYDROCHLORIDE
     Indication: MULTIPLE SCLEROSIS
     Dosage: 0.5 MG, QD
     Route: 048
     Dates: start: 20150409

REACTIONS (4)
  - Acute kidney injury [Recovered/Resolved]
  - Dehydration [Recovering/Resolving]
  - Decubitus ulcer [Recovering/Resolving]
  - Osteomyelitis [Recovered/Resolved]

NARRATIVE: CASE EVENT DATE: 20190220
